FAERS Safety Report 8836051 (Version 5)
Quarter: 2013Q4

REPORT INFORMATION
  Report Type: Report from Study
  Country: JP (occurrence: JP)
  Receive Date: 20121011
  Receipt Date: 20131230
  Transmission Date: 20140711
  Serious: Yes (Other)
  Sender: FDA-Public Use
  Company Number: JP-VERTEX PHARMACEUTICAL INC.-2012-022580

PATIENT
  Age: 63 Year
  Sex: Male

DRUGS (13)
  1. VX-950 (TELAPREVIR) [Suspect]
     Indication: CHRONIC HEPATITIS C
     Dosage: 1500 MG, QD
     Route: 048
     Dates: start: 20120629, end: 20120819
  2. VX-950 (TELAPREVIR) [Suspect]
     Dosage: 750 MG, QD
     Route: 048
     Dates: start: 20120820, end: 20120903
  3. REBETOL [Suspect]
     Indication: CHRONIC HEPATITIS C
     Dosage: 800 MG, QD
     Route: 048
     Dates: start: 20120629, end: 20120710
  4. REBETOL [Suspect]
     Dosage: 600 MG, QD
     Route: 048
     Dates: start: 20120711, end: 20120729
  5. REBETOL [Suspect]
     Dosage: 200 MG, QD
     Route: 048
     Dates: start: 20120730, end: 20121217
  6. PEGINTERFERON ALFA-2B [Suspect]
     Indication: CHRONIC HEPATITIS C
     Dosage: 1.5 ?G/KG, QW
     Route: 058
     Dates: start: 20120629, end: 20121210
  7. MAINTATE [Concomitant]
     Dosage: 1.25 MG, QD
     Route: 048
     Dates: start: 20120702, end: 20130110
  8. DIGOSIN [Concomitant]
     Dosage: 0.125 MG, QD
     Route: 048
     Dates: start: 20120702, end: 20130110
  9. THYRADIN S [Concomitant]
     Dosage: 50 ?G, QD
     Route: 048
     Dates: start: 20120702
  10. BEZATOL SR [Concomitant]
     Dosage: 400 MG, QD
     Route: 048
     Dates: start: 20120723
  11. ALLEGRA [Concomitant]
     Dosage: 120 MG, QD
     Route: 048
     Dates: start: 20120827, end: 20120923
  12. ALLOPURINOL [Concomitant]
     Dosage: 100MG TO 300MG, QD, PRN
     Route: 048
     Dates: start: 20120629
  13. ALLOPURINOL [Concomitant]
     Dosage: 200 MG, QD
     Route: 048
     Dates: end: 20121001

REACTIONS (1)
  - Rash [Recovered/Resolved]
